FAERS Safety Report 14731489 (Version 1)
Quarter: 2018Q2

REPORT INFORMATION
  Report Type: Spontaneous
  Country: US (occurrence: US)
  Receive Date: 20180407
  Receipt Date: 20180407
  Transmission Date: 20180711
  Serious: Yes (Other)
  Sender: FDA-Public Use
  Company Number: US-TEVA-2018-US-874002

PATIENT
  Sex: Female

DRUGS (1)
  1. ZOLPIDEM [Suspect]
     Active Substance: ZOLPIDEM\ZOLPIDEM TARTRATE
     Indication: SLEEP DISORDER
     Dosage: 3-4 TIMES AT NIGHT.
     Route: 065
     Dates: start: 201710

REACTIONS (4)
  - Fall [Unknown]
  - Somnambulism [Unknown]
  - Upper limb fracture [Unknown]
  - Pain in extremity [Unknown]
